FAERS Safety Report 24686030 (Version 2)
Quarter: 2025Q1

REPORT INFORMATION
  Report Type: Spontaneous
  Country: JP (occurrence: JP)
  Receive Date: 20241202
  Receipt Date: 20250129
  Transmission Date: 20250408
  Serious: No
  Sender: ADVANZ PHARMA
  Company Number: JP-SAKK-2024SA341255AA

PATIENT

DRUGS (1)
  1. HYDROXYCHLOROQUINE SULFATE [Suspect]
     Active Substance: HYDROXYCHLOROQUINE SULFATE
     Indication: Product used for unknown indication
     Route: 048

REACTIONS (1)
  - No adverse event [Unknown]
